FAERS Safety Report 13342711 (Version 1)
Quarter: 2017Q1

REPORT INFORMATION
  Report Type: Spontaneous
  Country: US (occurrence: US)
  Receive Date: 20170316
  Receipt Date: 20170316
  Transmission Date: 20170428
  Serious: Yes (Other)
  Sender: FDA-Public Use
  Company Number: US-009507513-2000-06-0166

PATIENT
  Age: 64 Year
  Sex: Female

DRUGS (5)
  1. DEXAMETHASONE. [Concomitant]
     Active Substance: DEXAMETHASONE
     Dates: start: 19991201
  2. AMIFOSTINE. [Suspect]
     Active Substance: AMIFOSTINE
     Indication: ADVERSE DRUG REACTION
     Dosage: DOSE: 500 MG QW, DURATION: 3 MONTH(S)
     Route: 042
     Dates: start: 20000203, end: 20000427
  3. PEPCID RPD [Suspect]
     Active Substance: FAMOTIDINE
     Indication: ILL-DEFINED DISORDER
     Route: 048
     Dates: start: 20000203
  4. TAXOL [Suspect]
     Active Substance: PACLITAXEL
     Indication: OVARIAN CANCER
     Dosage: DOSE: 130 MG
     Route: 042
     Dates: start: 19991201
  5. KYTRIL [Concomitant]
     Active Substance: GRANISETRON HYDROCHLORIDE
     Dates: start: 19991201

REACTIONS (5)
  - Back pain [Recovered/Resolved]
  - Neuropathy peripheral [Unknown]
  - Haemolysis [Recovered/Resolved]
  - Urine analysis abnormal [Unknown]
  - Dyspnoea [Unknown]

NARRATIVE: CASE EVENT DATE: 20000203
